FAERS Safety Report 7928369-1 (Version None)
Quarter: 2011Q4

REPORT INFORMATION
  Report Type: 
  Country: None (occurrence: None)
  Receive Date: 20111118
  Receipt Date: 20111115
  Transmission Date: 20120403
  Serious: Yes (Death, Hospitalization, Other)
  Sender: FDA-Public Use
  Company Number: PHHY2011US100777

PATIENT
  Age: 50 Year
  Sex: Female

DRUGS (2)
  1. METOPROLOL TARTRATE [Suspect]
     Dosage: 50MG, UNK
  2. BUPROPION HCL [Suspect]
     Dosage: 150MG UNK

REACTIONS (5)
  - MULTI-ORGAN FAILURE [None]
  - BRADYCARDIA [None]
  - HYPOTENSION [None]
  - CARDIAC ARREST [None]
  - OVERDOSE [None]
